FAERS Safety Report 11397155 (Version 3)
Quarter: 2015Q4

REPORT INFORMATION
  Report Type: Report from Study
  Country: US (occurrence: US)
  Receive Date: 20150819
  Receipt Date: 20151008
  Transmission Date: 20160304
  Serious: Yes (Other)
  Sender: FDA-Public Use
  Company Number: US-AMGEN-USASL2015079398

PATIENT
  Age: 65 Year
  Sex: Female

DRUGS (1)
  1. ENBREL [Suspect]
     Active Substance: ETANERCEPT
     Indication: RHEUMATOID ARTHRITIS
     Dosage: UNK
     Route: 065
     Dates: start: 2003

REACTIONS (10)
  - Injection site haemorrhage [Unknown]
  - Injection site bruising [Unknown]
  - Pain [Unknown]
  - Device malfunction [Unknown]
  - Gastric ulcer [Unknown]
  - Traumatic lung injury [Unknown]
  - Asthma [Unknown]
  - Osteoarthritis [Not Recovered/Not Resolved]
  - Injection site erythema [Unknown]
  - Road traffic accident [Unknown]

NARRATIVE: CASE EVENT DATE: 2003
